FAERS Safety Report 21555774 (Version 4)
Quarter: 2022Q4

REPORT INFORMATION
  Report Type: Spontaneous
  Country: PT (occurrence: PT)
  Receive Date: 20221104
  Receipt Date: 20221212
  Transmission Date: 20230113
  Serious: Yes (Other)
  Sender: FDA-Public Use
  Company Number: PT-MYLANLABS-2022M1090720

PATIENT
  Age: 83 Year
  Sex: Male

DRUGS (16)
  1. ROPINIROLE [Interacting]
     Active Substance: ROPINIROLE
     Indication: Hypertension
     Dosage: 0.5 MILLIGRAM, 3 TIMES A DAY
     Route: 065
  2. ROPINIROLE [Interacting]
     Active Substance: ROPINIROLE
     Dosage: 0.5 MILLIGRAM, 2 TIMES A DAY
     Route: 065
  3. SIMVASTATIN [Interacting]
     Active Substance: SIMVASTATIN
     Indication: Hypertension
     Dosage: 10 MILLIGRAM
     Route: 065
  4. GABAPENTIN [Interacting]
     Active Substance: GABAPENTIN
     Indication: Myoclonus
     Dosage: 100 MILLIGRAM
     Route: 065
  5. AMIODARONE [Interacting]
     Active Substance: AMIODARONE
     Indication: Hypertension
     Dosage: 100 MILLIGRAM
     Route: 065
  6. FINASTERIDE [Interacting]
     Active Substance: FINASTERIDE
     Indication: Hypertension
     Dosage: 5 MILLIGRAM
     Route: 065
  7. HYDROCHLOROTHIAZIDE\VALSARTAN [Interacting]
     Active Substance: HYDROCHLOROTHIAZIDE\VALSARTAN
     Indication: Hypertension
     Dosage: 160+2.5 MILLIGRAM
     Route: 065
  8. LERCANIDIPINE [Interacting]
     Active Substance: LERCANIDIPINE
     Indication: Hypertension
     Dosage: 10 MILLIGRAM
     Route: 065
     Dates: start: 2017
  9. RIVAROXABAN [Suspect]
     Active Substance: RIVAROXABAN
     Indication: Hypertension
     Dosage: 20 MILLIGRAM
     Route: 065
  10. LERCANIDIPINE HYDROCHLORIDE [Interacting]
     Active Substance: LERCANIDIPINE HYDROCHLORIDE
     Indication: Hypertension
     Dosage: 10 MILLIGRAM
     Route: 065
  11. RIVAROXABAN [Interacting]
     Active Substance: RIVAROXABAN
     Indication: Hypertension
     Dosage: 20 MILLIGRAM
     Route: 065
  12. CLEBOPRIDE [Interacting]
     Active Substance: CLEBOPRIDE
     Indication: Dyspepsia
     Dosage: UNK, TID
     Route: 065
     Dates: start: 201911, end: 202007
  13. CLEBOPRIDE [Interacting]
     Active Substance: CLEBOPRIDE
     Dosage: 0.5 MG, 2 TIMES A DAY
     Route: 065
  14. VALERIAN [Interacting]
     Active Substance: VALERIAN
     Indication: Product used for unknown indication
     Dosage: 125 MILLIGRAM
     Route: 065
  15. VALSARTAN [Concomitant]
     Active Substance: VALSARTAN
     Dosage: UNK (2.5/160 MILLIGRAM)
     Route: 065
  16. ESOMEPRAZOLE [Concomitant]
     Active Substance: ESOMEPRAZOLE
     Indication: Product used for unknown indication
     Dosage: 20 MILLIGRAM, TID
     Route: 065

REACTIONS (4)
  - Tardive dyskinesia [Recovered/Resolved]
  - Drug interaction [Recovered/Resolved]
  - Tremor [Recovered/Resolved]
  - Nausea [Unknown]

NARRATIVE: CASE EVENT DATE: 20200701
